FAERS Safety Report 25870781 (Version 1)
Quarter: 2025Q4

REPORT INFORMATION
  Report Type: Spontaneous
  Country: US (occurrence: None)
  Receive Date: 20251001
  Receipt Date: 20251001
  Transmission Date: 20260119
  Serious: Yes (Hospitalization)
  Sender: FDA-CTU
  Company Number: None

PATIENT
  Age: 76 Year
  Sex: Male

DRUGS (3)
  1. XCOPRI [Suspect]
     Active Substance: CENOBAMATE
     Indication: Epilepsy
     Dosage: FREQUENCY : DAILY;?
     Route: 048
     Dates: start: 20241024
  2. KEPPRA [Concomitant]
     Active Substance: LEVETIRACETAM
  3. VIMPAT [Concomitant]
     Active Substance: LACOSAMIDE

REACTIONS (3)
  - Balance disorder [None]
  - Fall [None]
  - Head injury [None]

NARRATIVE: CASE EVENT DATE: 20250928
